FAERS Safety Report 12255601 (Version 3)
Quarter: 2016Q2

REPORT INFORMATION
  Report Type: Report from Study
  Country: IT (occurrence: IT)
  Receive Date: 20160412
  Receipt Date: 20160425
  Transmission Date: 20160815
  Serious: Yes (Death, Hospitalization)
  Sender: FDA-Public Use
  Company Number: IT-ACCORD-039578

PATIENT
  Age: 75 Year
  Sex: Male

DRUGS (4)
  1. IRINOTECAN HOSPIRA [Suspect]
     Active Substance: IRINOTECAN
     Indication: PRODUCT USED FOR UNKNOWN INDICATION
     Route: 042
     Dates: start: 20160229, end: 20160229
  2. MORPHINE [Concomitant]
     Active Substance: MORPHINE
  3. FLUOROURACIL ACCORD [Suspect]
     Active Substance: FLUOROURACIL
     Indication: PRODUCT USED FOR UNKNOWN INDICATION
     Route: 042
     Dates: start: 20160229, end: 20160302
  4. ZALTRAP [Suspect]
     Active Substance: ZIV-AFLIBERCEPT
     Indication: PRODUCT USED FOR UNKNOWN INDICATION
     Dosage: RECEIVED THIRD CYCLE OF THERAPY ON 29-FEB-2016.??INITIALLY STARTED 1ST CYCLE FROM 28-JAN-2016.
     Route: 042
     Dates: start: 20160229, end: 20160229

REACTIONS (2)
  - Fatigue [Fatal]
  - Neoplasm progression [Fatal]

NARRATIVE: CASE EVENT DATE: 20160307
